FAERS Safety Report 13930786 (Version 1)
Quarter: 2017Q3

REPORT INFORMATION
  Report Type: Spontaneous
  Country: IT (occurrence: IT)
  Receive Date: 20170901
  Receipt Date: 20170901
  Transmission Date: 20171127
  Serious: Yes (Other)
  Sender: FDA-Public Use
  Company Number: IT-BIOMARINAP-IT-2017-115273

PATIENT
  Sex: Male

DRUGS (2)
  1. PML CRONO [Concomitant]
     Indication: NUTRITIONAL SUPPLEMENTATION
  2. ALDURAZYME [Suspect]
     Active Substance: LARONIDASE
     Indication: PRODUCT USED FOR UNKNOWN INDICATION
     Dosage: UNK
     Route: 041
     Dates: start: 20110318

REACTIONS (5)
  - Retinitis pigmentosa [Unknown]
  - Visual impairment [Unknown]
  - Cataract [Unknown]
  - Eye pain [Unknown]
  - Dry eye [Unknown]
